FAERS Safety Report 24833151 (Version 4)
Quarter: 2025Q1

REPORT INFORMATION
  Report Type: Spontaneous
  Country: NL (occurrence: NL)
  Receive Date: 20250111
  Receipt Date: 20250306
  Transmission Date: 20250409
  Serious: Yes (Other)
  Sender: AUROBINDO
  Company Number: NL-AMAROX PHARMA-AMR2024NL02823

PATIENT
  Age: 30 Year
  Sex: Female
  Weight: 96.5 kg

DRUGS (18)
  1. IMATINIB [Suspect]
     Active Substance: IMATINIB
     Indication: Chronic myeloid leukaemia
     Dosage: 400 MILLIGRAM, ONCE A DAY (400 MILLIGRAM, ONCE DAILY)
     Route: 065
     Dates: start: 201803, end: 2018
  2. NILOTINIB [Suspect]
     Active Substance: NILOTINIB
     Indication: Chronic myeloid leukaemia
     Dosage: 400 MILLIGRAM, TWO TIMES A DAY (?800 ?G/L)
     Route: 065
  3. NILOTINIB [Suspect]
     Active Substance: NILOTINIB
     Dosage: 300 MILLIGRAM, TWO TIMES A DAY (304 NG/ML)
     Route: 065
  4. NILOTINIB [Suspect]
     Active Substance: NILOTINIB
     Dosage: 300 MILLIGRAM, TWO TIMES A DAY (560 NG/ML)
     Route: 065
  5. NILOTINIB [Suspect]
     Active Substance: NILOTINIB
     Dosage: 400 MILLIGRAM, TWO TIMES A DAY (1060 NG/ML)
     Route: 065
  6. NILOTINIB [Suspect]
     Active Substance: NILOTINIB
     Dosage: 600 MILLIGRAM, TWO TIMES A DAY (542 NG/ML)
     Route: 065
  7. DASATINIB [Suspect]
     Active Substance: DASATINIB
     Indication: Chronic myeloid leukaemia
     Dosage: 100 MILLIGRAM, ONCE A DAY (TROUGH)
     Route: 065
  8. DASATINIB [Suspect]
     Active Substance: DASATINIB
     Dosage: 70 MILLIGRAM, ONCE A DAY ({2.5 NG/ML)
     Route: 065
  9. DASATINIB [Suspect]
     Active Substance: DASATINIB
     Dosage: 50 MILLIGRAM, ONCE A DAY (PEAK)
     Route: 065
  10. DASATINIB [Suspect]
     Active Substance: DASATINIB
     Dosage: 70 MILLIGRAM, ONCE A DAY (2.6 NG/ML (TROUGH)
     Route: 065
  11. DASATINIB [Suspect]
     Active Substance: DASATINIB
     Dosage: 100 MILLIGRAM, ONCE A DAY (1.57 NG/ML (TROUGH)
     Route: 065
  12. DASATINIB [Suspect]
     Active Substance: DASATINIB
     Dosage: 140 MILLIGRAM, ONCE A DAY (1.54 NG/ML (TROUGH)
     Route: 065
  13. DASATINIB [Suspect]
     Active Substance: DASATINIB
     Dosage: 180 MILLIGRAM, ONCE A DAY (1.83 NG/ML (TROUGH)
     Route: 065
  14. ICLUSIG [Suspect]
     Active Substance: PONATINIB HYDROCHLORIDE
     Indication: Chronic myeloid leukaemia
     Dosage: 45 MILLIGRAM, ONCE A DAY (NO TARGET. MEDIAN LEVEL 34.2 ?G)
     Route: 065
     Dates: start: 2019
  15. ICLUSIG [Suspect]
     Active Substance: PONATINIB HYDROCHLORIDE
     Dosage: 30 MILLIGRAM, ONCE A DAY
     Route: 065
  16. ICLUSIG [Suspect]
     Active Substance: PONATINIB HYDROCHLORIDE
     Dosage: 15 MILLIGRAM, ONCE A DAY (11 ?G/L*)
     Route: 065
  17. ICLUSIG [Suspect]
     Active Substance: PONATINIB HYDROCHLORIDE
     Dosage: 45 MILLIGRAM, ONCE A DAY (NO TARGET. MEDIAN LEVEL 34.2 ?G)
     Route: 065
     Dates: start: 202109
  18. OMEPRAZOLE [Concomitant]
     Active Substance: OMEPRAZOLE
     Indication: Dyspepsia
     Dosage: 40 MILLIGRAM, ONCE A DAY
     Route: 065
     Dates: start: 201809

REACTIONS (14)
  - Nausea [Unknown]
  - Drug intolerance [Unknown]
  - Abdominal pain upper [Unknown]
  - Myalgia [Unknown]
  - Palpitations [Unknown]
  - Peripheral coldness [Unknown]
  - Diarrhoea [Unknown]
  - Vomiting [Unknown]
  - Rash [Recovered/Resolved]
  - Blood pressure increased [Unknown]
  - Headache [Recovered/Resolved]
  - Arthralgia [Unknown]
  - Fatigue [Unknown]
  - Drug ineffective [Unknown]

NARRATIVE: CASE EVENT DATE: 20180101
